FAERS Safety Report 8299864-3 (Version None)
Quarter: 2012Q2

REPORT INFORMATION
  Report Type: 
  Country: None (occurrence: None)
  Receive Date: 20120419
  Receipt Date: 20120322
  Transmission Date: 20120825
  Serious: Yes (Hospitalization, Other)
  Sender: FDA-Public Use
  Company Number: DK-BAXTER-2012BH004923

PATIENT
  Sex: Female
  Weight: 64 kg

DRUGS (19)
  1. PANTOPRAZOLE [Concomitant]
     Route: 065
     Dates: start: 20120105
  2. TENORETIC 100 [Concomitant]
     Indication: HYPERTENSION
     Route: 065
  3. SIMVASTATIN [Concomitant]
     Route: 065
     Dates: start: 20100917
  4. CYTOXAN [Suspect]
     Dosage: 350 MG, UNK
     Route: 042
     Dates: start: 20120213
  5. VINCRISTINE [Suspect]
     Indication: DIFFUSE LARGE B-CELL LYMPHOMA
     Route: 042
     Dates: start: 20120109
  6. MIRTAZAPINE [Concomitant]
     Route: 065
     Dates: start: 20111219
  7. NEUPOGEN [Suspect]
     Indication: DIFFUSE LARGE B-CELL LYMPHOMA
     Route: 058
     Dates: start: 20120110
  8. MORPHINE SULFATE [Concomitant]
     Route: 065
     Dates: start: 20111201
  9. CYTOXAN [Suspect]
     Indication: DIFFUSE LARGE B-CELL LYMPHOMA
     Route: 042
     Dates: start: 20120109
  10. DOXORUBICIN HCL [Suspect]
     Indication: DIFFUSE LARGE B-CELL LYMPHOMA
     Route: 042
     Dates: start: 20120109
  11. NEUPOGEN [Suspect]
     Route: 058
     Dates: start: 20120214
  12. RITUXIMAB [Suspect]
     Route: 042
     Dates: start: 20120218
  13. PREDNISONE TAB [Suspect]
     Indication: DIFFUSE LARGE B-CELL LYMPHOMA
     Route: 048
     Dates: start: 20120109
  14. PREDNISONE TAB [Suspect]
     Route: 048
     Dates: start: 20120213
  15. RITUXIMAB [Suspect]
     Indication: DIFFUSE LARGE B-CELL LYMPHOMA
     Route: 042
     Dates: start: 20120109
  16. VENLAFAXINE [Concomitant]
     Indication: DEPRESSION
     Route: 065
     Dates: start: 20120105
  17. SIMVASTATIN [Concomitant]
     Route: 065
     Dates: start: 20100914
  18. DOXORUBICIN HCL [Suspect]
     Route: 042
     Dates: start: 20120213
  19. VINCRISTINE [Suspect]
     Route: 042
     Dates: start: 20120213

REACTIONS (4)
  - ORAL CANDIDIASIS [None]
  - DIZZINESS [None]
  - WEIGHT DECREASED [None]
  - DEHYDRATION [None]
